FAERS Safety Report 19656681 (Version 1)
Quarter: 2021Q3

REPORT INFORMATION
  Report Type: Report from Study
  Country: ES (occurrence: ES)
  Receive Date: 20210804
  Receipt Date: 20210804
  Transmission Date: 20211014
  Serious: Yes (Hospitalization)
  Sender: FDA-Public Use
  Company Number: ES-TEVA-2021-ES-1938485

PATIENT
  Age: 79 Year
  Sex: Male

DRUGS (6)
  1. HIDRALAZINA HIDROCLORURO (1720CH) [Concomitant]
     Active Substance: HYDRALAZINE HYDROCHLORIDE
     Indication: HYPERTENSION
     Dosage: 25 MG
     Route: 048
     Dates: start: 20200323, end: 20200402
  2. TAMSULOSINA HIDROCLORURO (2751CH) [Concomitant]
     Active Substance: TAMSULOSIN HYDROCHLORIDE
     Dosage: 0.4 MG
     Route: 048
     Dates: start: 20200323, end: 20200402
  3. AMOXICILINA + ACIDO CLAVULANICO [Concomitant]
     Active Substance: AMOXICILLIN\CLAVULANIC ACID
     Dosage: 3 G
     Route: 042
     Dates: start: 20200323, end: 20200328
  4. BEMIPARINA SODICA (2817SO) [Concomitant]
     Dosage: 3500 IU
     Route: 058
     Dates: start: 20200323, end: 20200402
  5. LOPINAVIR + RITONAVIR [Suspect]
     Active Substance: LOPINAVIR\RITONAVIR
     Indication: COVID-19
     Dosage: 800 MG
     Route: 048
     Dates: start: 20200323, end: 20200326
  6. HIDROXICLOROQUINA SULFATO (2143SU) [Suspect]
     Active Substance: HYDROXYCHLOROQUINE SULFATE
     Indication: COVID-19
     Dosage: 2 G
     Route: 048
     Dates: start: 20200323, end: 20200326

REACTIONS (1)
  - Long QT syndrome [Recovered/Resolved]

NARRATIVE: CASE EVENT DATE: 20200326
